FAERS Safety Report 15846980 (Version 5)
Quarter: 2021Q4

REPORT INFORMATION
  Report Type: Report from Study
  Country: US (occurrence: US)
  Receive Date: 20190121
  Receipt Date: 20211022
  Transmission Date: 20220304
  Serious: Yes (Other)
  Sender: FDA-Public Use
  Company Number: US-SA-2015SA063452

PATIENT
  Age: 11 Year
  Sex: Male

DRUGS (4)
  1. IMIGLUCERASE [Suspect]
     Active Substance: IMIGLUCERASE
     Indication: Gaucher^s disease
     Dosage: 5200 MG, QW
     Route: 042
     Dates: start: 20051115, end: 20150507
  2. IMIGLUCERASE [Suspect]
     Active Substance: IMIGLUCERASE
     Dosage: 4800.00; QW
     Route: 041
     Dates: start: 20080901
  3. IMIGLUCERASE [Suspect]
     Active Substance: IMIGLUCERASE
     Dosage: 4800.00; QW
     Route: 041
  4. IMIGLUCERASE [Suspect]
     Active Substance: IMIGLUCERASE
     Dosage: 4800.00; QW
     Route: 041
     Dates: start: 20170426

REACTIONS (8)
  - Interstitial lung disease [Unknown]
  - Magnetic resonance imaging abnormal [Unknown]
  - Dyspnoea [Unknown]
  - Vascular device user [Unknown]
  - Illness [Unknown]
  - Inappropriate schedule of product administration [Unknown]
  - Anxiety [Not Recovered/Not Resolved]
  - Depression [Not Recovered/Not Resolved]
